FAERS Safety Report 5766187-3 (Version None)
Quarter: 2008Q2

REPORT INFORMATION
  Report Type: 
  Country: None (occurrence: None)
  Receive Date: 20080609
  Receipt Date: 20080508
  Transmission Date: 20081010
  Serious: No
  Sender: FDA-Public Use
  Company Number: 002#2#2008-00391

PATIENT
  Age: 47 Year
  Sex: Female

DRUGS (1)
  1. NEUPRO [Suspect]
     Dosage: 4MG/24H,1 IN 1 D,TRANSDERMAL
     Route: 062
     Dates: start: 20071201, end: 20080201

REACTIONS (1)
  - CONDITION AGGRAVATED [None]
